FAERS Safety Report 5907841-X (Version None)
Quarter: 2008Q4

REPORT INFORMATION
  Report Type: 
  Country: None (occurrence: None)
  Receive Date: 20081003
  Receipt Date: 20081002
  Transmission Date: 20090506
  Serious: Yes (Death, Hospitalization, Other)
  Sender: FDA-Public Use
  Company Number: PHHY2008CA18988

PATIENT
  Sex: Male

DRUGS (2)
  1. SANDOSTATIN LAR [Suspect]
     Indication: CARCINOID SYNDROME
     Dosage: 60 MG EVERY 2 WEEKS
     Route: 030
     Dates: start: 20050422, end: 20080821
  2. SANDOSTATIN LAR [Suspect]
     Dosage: 60 MG Q2 WEEKS
     Route: 030

REACTIONS (7)
  - ASTHENIA [None]
  - CEREBROVASCULAR ACCIDENT [None]
  - CYANOSIS [None]
  - DIARRHOEA [None]
  - LOSS OF CONSCIOUSNESS [None]
  - PAINFUL DEFAECATION [None]
  - THROMBOSIS [None]
